FAERS Safety Report 22225073 (Version 1)
Quarter: 2023Q2

REPORT INFORMATION
  Report Type: Spontaneous
  Country: US (occurrence: None)
  Receive Date: 20230417
  Receipt Date: 20230417
  Transmission Date: 20230722
  Serious: No
  Sender: FDA-Public Use
  Company Number: None

PATIENT

DRUGS (1)
  1. TYRVAYA [Suspect]
     Active Substance: VARENICLINE TARTRATE
     Route: 045

REACTIONS (4)
  - Stomatitis [None]
  - Stomatitis [None]
  - Feeding disorder [None]
  - Fluid intake reduced [None]
